FAERS Safety Report 4956719-7 (Version None)
Quarter: 2006Q1

REPORT INFORMATION
  Report Type: 
  Country: None (occurrence: None)
  Receive Date: 20060329
  Receipt Date: 20060322
  Transmission Date: 20060701
  Serious: Yes (Hospitalization, Other)
  Sender: FDA-Public Use
  Company Number: 432364

PATIENT
  Age: 57 Year
  Sex: Male

DRUGS (2)
  1. DILATREND [Suspect]
     Indication: DRUG USE FOR UNKNOWN INDICATION
     Dosage: 6.25MG TWICE PER DAY
     Route: 065
     Dates: start: 20051003
  2. DIABETES MEDICATION [Concomitant]
     Route: 065

REACTIONS (6)
  - BLOOD PRESSURE DECREASED [None]
  - CARDIAC FAILURE [None]
  - DIFFICULTY IN WALKING [None]
  - DISCOMFORT [None]
  - DYSPNOEA [None]
  - FLUID OVERLOAD [None]
